FAERS Safety Report 17060872 (Version 1)
Quarter: 2019Q4

REPORT INFORMATION
  Report Type: Report from Study
  Country: US (occurrence: US)
  Receive Date: 20191121
  Receipt Date: 20191121
  Transmission Date: 20200122
  Serious: Yes (Hospitalization, Other)
  Sender: FDA-Public Use
  Company Number: US-BAYER-2019-196603

PATIENT
  Age: 76 Year
  Sex: Female
  Weight: 69.84 kg

DRUGS (3)
  1. OPSUMIT [Concomitant]
     Active Substance: MACITENTAN
     Dosage: UNK
  2. ADEMPAS [Suspect]
     Active Substance: RIOCIGUAT
     Indication: PULMONARY ARTERIAL HYPERTENSION
     Dosage: 0.5 MG, TID
     Route: 048
     Dates: start: 20180418
  3. ELIQUIS [Concomitant]
     Active Substance: APIXABAN
     Dosage: UNK

REACTIONS (7)
  - Ill-defined disorder [None]
  - Anaemia [Unknown]
  - Renal failure [Unknown]
  - Hypotension [Unknown]
  - Internal haemorrhage [Unknown]
  - Product dose omission [None]
  - Mitral valve incompetence [Unknown]

NARRATIVE: CASE EVENT DATE: 201910
